FAERS Safety Report 25149533 (Version 1)
Quarter: 2025Q2

REPORT INFORMATION
  Report Type: Spontaneous
  Country: IR (occurrence: IR)
  Receive Date: 20250402
  Receipt Date: 20250402
  Transmission Date: 20250716
  Serious: Yes (Hospitalization, Other)
  Sender: GLAND PHARMA
  Company Number: IR-GLANDPHARMA-IR-2025GLNLIT00870

PATIENT
  Age: 10 Year
  Sex: Male

DRUGS (7)
  1. CYTARABINE [Suspect]
     Active Substance: CYTARABINE
     Indication: Acute myeloid leukaemia
     Route: 065
  2. CYTARABINE [Suspect]
     Active Substance: CYTARABINE
     Indication: Cutaneous mucormycosis
  3. METHOTREXATE [Suspect]
     Active Substance: METHOTREXATE
     Indication: Acute myeloid leukaemia
     Route: 065
  4. METHOTREXATE [Suspect]
     Active Substance: METHOTREXATE
     Indication: Cutaneous mucormycosis
  5. ETOPOSIDE [Suspect]
     Active Substance: ETOPOSIDE
     Indication: Acute myeloid leukaemia
     Route: 065
  6. ETOPOSIDE [Suspect]
     Active Substance: ETOPOSIDE
     Indication: Cutaneous mucormycosis
  7. AMPHOTERICIN B [Concomitant]
     Active Substance: AMPHOTERICIN B
     Indication: Cutaneous mucormycosis
     Route: 065

REACTIONS (5)
  - Immune reconstitution inflammatory syndrome [Recovering/Resolving]
  - Tachypnoea [Recovering/Resolving]
  - Blood pressure increased [Recovering/Resolving]
  - Aspergillus infection [Recovering/Resolving]
  - Pyrexia [Recovering/Resolving]
